FAERS Safety Report 11410217 (Version 3)
Quarter: 2015Q3

REPORT INFORMATION
  Report Type: Spontaneous
  Country: US (occurrence: US)
  Receive Date: 20150824
  Receipt Date: 20150907
  Transmission Date: 20151125
  Serious: Yes (Hospitalization)
  Sender: FDA-Public Use
  Company Number: US-UNITED THERAPEUTICS-UNT-2015-009881

PATIENT
  Age: 14 Year
  Sex: Male
  Weight: 59.86 kg

DRUGS (5)
  1. REVATIO [Concomitant]
     Active Substance: SILDENAFIL CITRATE
     Indication: PRODUCT USED FOR UNKNOWN INDICATION
  2. COUMADIN [Concomitant]
     Active Substance: WARFARIN SODIUM
     Indication: PRODUCT USED FOR UNKNOWN INDICATION
  3. REMODULIN [Suspect]
     Active Substance: TREPROSTINIL
     Dosage: 0.011 ?G/KG, CONTINUING
     Route: 041
  4. REMODULIN [Suspect]
     Active Substance: TREPROSTINIL
     Indication: PULMONARY HYPERTENSION
     Dosage: 0.010 ?G/KG, CONTINUING
     Route: 041
     Dates: start: 20150803
  5. REMODULIN [Suspect]
     Active Substance: TREPROSTINIL
     Dosage: 0.022 ?G/KG, CONTINUING
     Route: 041

REACTIONS (14)
  - Headache [Unknown]
  - Oedema peripheral [Unknown]
  - Injection site irritation [Unknown]
  - Device dislocation [Unknown]
  - International normalised ratio increased [Unknown]
  - Erythema [Unknown]
  - Injection site haemorrhage [Unknown]
  - Flushing [Unknown]
  - Chest pain [Unknown]
  - Drug dose omission [Unknown]
  - Injection site dryness [Unknown]
  - Dermatitis contact [Unknown]
  - Paraesthesia [Unknown]
  - Device issue [Unknown]

NARRATIVE: CASE EVENT DATE: 201508
